FAERS Safety Report 18133929 (Version 1)
Quarter: 2020Q3

REPORT INFORMATION
  Report Type: Spontaneous
  Country: BR (occurrence: BR)
  Receive Date: 20200811
  Receipt Date: 20200811
  Transmission Date: 20201103
  Serious: Yes (Other)
  Sender: FDA-Public Use
  Company Number: NVSC2020BR220552

PATIENT
  Age: 93 Year
  Sex: Male

DRUGS (1)
  1. FUMARATO DE QUETIAPINA [Suspect]
     Active Substance: QUETIAPINE FUMARATE
     Indication: SLEEP DISORDER
     Dosage: 50 MG
     Route: 065

REACTIONS (6)
  - Insomnia [Unknown]
  - Dry mouth [Unknown]
  - Off label use [Unknown]
  - Delirium [Unknown]
  - Irritability [Unknown]
  - Incorrect dose administered [Unknown]
